FAERS Safety Report 23698399 (Version 2)
Quarter: 2024Q2

REPORT INFORMATION
  Report Type: Report from Study
  Country: US (occurrence: US)
  Receive Date: 20240402
  Receipt Date: 20240424
  Transmission Date: 20240715
  Serious: No
  Sender: FDA-Public Use
  Company Number: US-AstraZeneca-CH-00592483A

PATIENT
  Sex: Female

DRUGS (1)
  1. ULTOMIRIS [Suspect]
     Active Substance: RAVULIZUMAB-CWVZ
     Indication: Myasthenia gravis
     Dosage: UNK
     Route: 065

REACTIONS (7)
  - Malaise [Unknown]
  - Dysphagia [Not Recovered/Not Resolved]
  - Insomnia [Unknown]
  - Frustration tolerance decreased [Unknown]
  - Eye disorder [Unknown]
  - Muscular weakness [Unknown]
  - Fatigue [Unknown]
